FAERS Safety Report 19232100 (Version 1)
Quarter: 2021Q2

REPORT INFORMATION
  Report Type: Spontaneous
  Country: US (occurrence: US)
  Receive Date: 20210507
  Receipt Date: 20210507
  Transmission Date: 20210717
  Serious: No
  Sender: FDA-Public Use
  Company Number: US-SA-2021SA149615

PATIENT
  Age: 23 Year
  Sex: Male

DRUGS (4)
  1. DUPIXENT [Suspect]
     Active Substance: DUPILUMAB
     Indication: NEURODERMATITIS
     Dosage: 300 MG, QOW
     Route: 058
     Dates: start: 20200304
  2. CLONIDINE. [Concomitant]
     Active Substance: CLONIDINE
  3. QUETIAPINE. [Concomitant]
     Active Substance: QUETIAPINE
  4. GUANFACINE. [Concomitant]
     Active Substance: GUANFACINE

REACTIONS (2)
  - Erythema of eyelid [Unknown]
  - Swelling of eyelid [Unknown]

NARRATIVE: CASE EVENT DATE: 20210401
